FAERS Safety Report 7519762-X (Version None)
Quarter: 2011Q2

REPORT INFORMATION
  Report Type: 
  Country: None (occurrence: None)
  Receive Date: 20110602
  Receipt Date: 20110525
  Transmission Date: 20111010
  Serious: Yes (Death)
  Sender: FDA-Public Use
  Company Number: FR-BAXTER-2011BH017739

PATIENT
  Age: 58 Year
  Sex: Male

DRUGS (8)
  1. CYCLOPHOSPHAMIDE [Suspect]
     Indication: PLASMACYTOSIS
     Route: 065
     Dates: start: 20030101, end: 20030101
  2. VELCADE [Suspect]
     Indication: PLASMACYTOSIS
     Route: 065
     Dates: start: 20050301, end: 20050401
  3. DEXAMETHASONE [Concomitant]
     Indication: PRODUCT USED FOR UNKNOWN INDICATION
     Route: 065
     Dates: start: 20050301, end: 20050401
  4. MELPHALAN HYDROCHLORIDE [Suspect]
     Indication: PLASMACYTOSIS
     Route: 065
     Dates: start: 20060501, end: 20060501
  5. LENALIDOMIDE [Suspect]
     Route: 048
     Dates: start: 20061101
  6. LENALIDOMIDE [Suspect]
     Indication: PLASMACYTOSIS
     Route: 048
     Dates: end: 20101201
  7. PREDNISOLONE [Concomitant]
     Indication: PRODUCT USED FOR UNKNOWN INDICATION
     Route: 065
     Dates: start: 20041001, end: 20050201
  8. MELPHALAN HYDROCHLORIDE [Suspect]
     Route: 065
     Dates: start: 20041001, end: 20050201

REACTIONS (1)
  - REFRACTORY ANAEMIA WITH AN EXCESS OF BLASTS [None]
